FAERS Safety Report 8939916 (Version 1)
Quarter: 2012Q4

REPORT INFORMATION
  Report Type: 
  Country: BR (occurrence: BR)
  Receive Date: 20121130
  Receipt Date: 20121130
  Transmission Date: 20130627
  Serious: Yes (Death, Other)
  Sender: FDA-Public Use
  Company Number: BR-009507513-1209BRA009468

PATIENT
  Sex: Female
  Weight: 60 kg

DRUGS (5)
  1. PEG-INTRON [Suspect]
     Indication: HEPATITIS C
     Dosage: 80 Microgram, q3w
     Route: 058
  2. PEG-INTRON [Suspect]
     Dosage: 80 Microgram, qw
     Dates: start: 201207
  3. RIBAVIRIN [Suspect]
     Indication: HEPATITIS C
     Dosage: 250 mg, UNK
     Route: 048
  4. VICTRELIS [Suspect]
     Indication: HEPATITIS C
     Dosage: 800 mg, q8h
     Route: 048
     Dates: start: 201207
  5. VITAMIN D (UNSPECIFIED) [Concomitant]
     Dosage: UNK

REACTIONS (13)
  - Hepatic failure [Fatal]
  - Neoplasm malignant [Unknown]
  - Hepatic cirrhosis [Unknown]
  - White blood cell count decreased [Unknown]
  - Anaemia [Unknown]
  - Neck mass [Unknown]
  - Lymphadenopathy [Unknown]
  - Nodule [Unknown]
  - Platelet count decreased [Unknown]
  - Overdose [Unknown]
  - Dysgeusia [Unknown]
  - Decreased appetite [Unknown]
  - Drug hypersensitivity [Unknown]
